FAERS Safety Report 10757863 (Version 3)
Quarter: 2015Q2

REPORT INFORMATION
  Report Type: Spontaneous
  Country: SI (occurrence: SI)
  Receive Date: 20150203
  Receipt Date: 20150403
  Transmission Date: 20150821
  Serious: Yes (Hospitalization)
  Sender: FDA-Public Use
  Company Number: SI-SA-2015SA010830

PATIENT
  Age: 62 Year
  Sex: Male
  Weight: 63 kg

DRUGS (6)
  1. PROPAFENONE. [Concomitant]
     Active Substance: PROPAFENONE
     Dates: start: 200911
  2. FABRAZYME [Suspect]
     Active Substance: AGALSIDASE BETA
     Indication: FABRY^S DISEASE
     Route: 042
     Dates: start: 20091005
  3. PROPAFENONE. [Concomitant]
     Active Substance: PROPAFENONE
     Dates: start: 20150128
  4. BISOPROLOL [Concomitant]
     Active Substance: BISOPROLOL
     Dates: start: 200912
  5. RAMIPRIL. [Concomitant]
     Active Substance: RAMIPRIL
     Dates: start: 20150128
  6. RIVAROXABAN [Concomitant]
     Active Substance: RIVAROXABAN
     Dates: start: 201412

REACTIONS (2)
  - Atrial fibrillation [Recovered/Resolved]
  - Arrhythmia [Recovered/Resolved]

NARRATIVE: CASE EVENT DATE: 20141205
